FAERS Safety Report 4467869-6 (Version None)
Quarter: 2004Q3

REPORT INFORMATION
  Report Type: 
  Country: None (occurrence: None)
  Receive Date: 20040928
  Receipt Date: 20030301
  Transmission Date: 20050211
  Serious: Yes (Other)
  Sender: FDA-Public Use
  Company Number: 601543

PATIENT
  Age: 7 Month
  Sex: Male
  Weight: 9 kg

DRUGS (7)
  1. RECOMBINATE [Suspect]
     Indication: FACTOR VIII DEFICIENCY
     Dosage: PRN; INTRAVENOUS
     Route: 042
     Dates: start: 19990917, end: 19991001
  2. RECOMBINATE [Suspect]
     Indication: SURGERY
     Dosage: PRN; INTRAVENOUS
     Route: 042
     Dates: start: 19990917, end: 19991001
  3. HYDROXYZINE [Concomitant]
  4. NEMBUTAL [Concomitant]
  5. ACETAMINOPHEN [Concomitant]
  6. UVESTEROL [Concomitant]
  7. PROPULSID [Concomitant]

REACTIONS (1)
  - FACTOR VIII INHIBITION [None]
